FAERS Safety Report 10129619 (Version 1)
Quarter: 2014Q2

REPORT INFORMATION
  Report Type: Spontaneous
  Country: US (occurrence: None)
  Receive Date: 20140424
  Receipt Date: 20140424
  Transmission Date: 20141212
  Serious: Yes (Hospitalization)
  Sender: FDA-Public Use
  Company Number: None

PATIENT
  Age: 74 Year
  Sex: Female
  Weight: 57.7 kg

DRUGS (1)
  1. GEMCITABINE [Suspect]
     Dates: end: 20140224

REACTIONS (1)
  - Pain in extremity [None]
